FAERS Safety Report 7328814-9 (Version None)
Quarter: 2011Q1

REPORT INFORMATION
  Report Type: 
  Country: None (occurrence: None)
  Receive Date: 20110303
  Receipt Date: 20110221
  Transmission Date: 20110831
  Serious: Yes (Other)
  Sender: FDA-Public Use
  Company Number: GB-ROCHE-761682

PATIENT
  Age: 58 Year
  Sex: Male

DRUGS (2)
  1. IMATINIB MESYLATE [Suspect]
     Indication: CHRONIC MYELOID LEUKAEMIA
     Route: 065
  2. INTERFERON ALFA [Suspect]
     Indication: CHRONIC MYELOID LEUKAEMIA
     Route: 065

REACTIONS (4)
  - PARAESTHESIA [None]
  - MUSCULAR WEAKNESS [None]
  - PERIPHERAL SENSORIMOTOR NEUROPATHY [None]
  - GAIT DISTURBANCE [None]
